FAERS Safety Report 24545515 (Version 1)
Quarter: 2024Q4

REPORT INFORMATION
  Report Type: Spontaneous
  Country: US (occurrence: None)
  Receive Date: 20241023
  Receipt Date: 20241023
  Transmission Date: 20250114
  Serious: Yes (Other)
  Sender: Public
  Company Number: None

PATIENT
  Age: 81 Year
  Sex: Female

DRUGS (2)
  1. KETOCONAZOLE [Suspect]
     Active Substance: KETOCONAZOLE
     Indication: Tinea pedis
     Dosage: OTHER QUANTITY : 1 SPARINGLY;?FREQUENCY : TWICE A DAY;?
     Route: 061
     Dates: start: 20240702, end: 20240902
  2. CHOLECALCIFEROL [Concomitant]
     Active Substance: CHOLECALCIFEROL

REACTIONS (6)
  - Skin fissures [None]
  - Skin hypertrophy [None]
  - Keratitis [None]
  - Hyperkeratosis [None]
  - Paraesthesia [None]
  - Insomnia [None]

NARRATIVE: CASE EVENT DATE: 20240702
